FAERS Safety Report 8860436 (Version 2)
Quarter: 2012Q4

REPORT INFORMATION
  Report Type: 
  Country: US (occurrence: US)
  Receive Date: 20121025
  Receipt Date: 20121126
  Transmission Date: 20130627
  Serious: Yes (Death, Other)
  Sender: FDA-Public Use
  Company Number: US-BAYER-2012-111209

PATIENT
  Age: 50 Year
  Sex: Male

DRUGS (1)
  1. BETASERON [Suspect]
     Indication: RELAPSING-REMITTING MULTIPLE SCLEROSIS
     Dosage: 8 miu, QOD
     Route: 058
     Dates: start: 20000531, end: 20121020

REACTIONS (11)
  - Injection site infection [Fatal]
  - Injection site discolouration [Fatal]
  - Injection site erythema [Fatal]
  - Injection site swelling [Fatal]
  - Injection site pain [Fatal]
  - Gait disturbance [None]
  - Feeling abnormal [Fatal]
  - Loss of consciousness [None]
  - Vomiting [None]
  - Unresponsive to stimuli [Fatal]
  - Brain death [Fatal]
